FAERS Safety Report 17831347 (Version 1)
Quarter: 2020Q2

REPORT INFORMATION
  Report Type: Spontaneous
  Country: US (occurrence: US)
  Receive Date: 20200527
  Receipt Date: 20200527
  Transmission Date: 20200714
  Serious: Yes (Hospitalization, Other)
  Sender: FDA-Public Use
  Company Number: US-NAPPMUNDI-USA-2020-0152438

PATIENT
  Sex: Male

DRUGS (5)
  1. OXYCONTIN [Suspect]
     Active Substance: OXYCODONE HYDROCHLORIDE
     Indication: PAIN
     Dosage: 80 MG 1 TABLET, TID
     Route: 048
     Dates: start: 2005
  2. OXYCODONE/ ACETAMINOPHEN TABLETS [Suspect]
     Active Substance: ACETAMINOPHEN\OXYCODONE HYDROCHLORIDE
     Indication: PAIN
     Dosage: 10/650 MG 1 TABLET, Q4- 6H
     Route: 048
     Dates: start: 2005
  3. SOMA [Suspect]
     Active Substance: CARISOPRODOL
     Indication: PRODUCT USED FOR UNKNOWN INDICATION
     Route: 048
  4. DILAUDID [Concomitant]
     Active Substance: HYDROMORPHONE HYDROCHLORIDE
     Indication: PAIN
     Dosage: UNK
     Route: 048
     Dates: start: 201910
  5. SUBOXONE [Concomitant]
     Active Substance: BUPRENORPHINE HYDROCHLORIDE\NALOXONE HYDROCHLORIDE
     Indication: PRODUCT USED FOR UNKNOWN INDICATION
     Dosage: UNK
     Route: 048

REACTIONS (9)
  - Intestinal obstruction [Unknown]
  - Drug tolerance increased [Unknown]
  - Drug abuse [Unknown]
  - Abdominal exploration [Unknown]
  - Drug dependence [Unknown]
  - Insomnia [Unknown]
  - Drug withdrawal syndrome [Recovered/Resolved]
  - Diarrhoea [Unknown]
  - Neck surgery [Unknown]

NARRATIVE: CASE EVENT DATE: 2005
